FAERS Safety Report 22016477 (Version 6)
Quarter: 2025Q1

REPORT INFORMATION
  Report Type: Report from Study
  Country: CA (occurrence: CA)
  Receive Date: 20230221
  Receipt Date: 20250106
  Transmission Date: 20250408
  Serious: Yes (Other)
  Sender: TAKEDA
  Company Number: CA-TAKEDA-2022TUS101292

PATIENT
  Age: 32 Year
  Sex: Female
  Weight: 63 kg

DRUGS (6)
  1. VEDOLIZUMAB [Suspect]
     Active Substance: VEDOLIZUMAB
     Indication: Crohn^s disease
  2. VEDOLIZUMAB [Suspect]
     Active Substance: VEDOLIZUMAB
  3. VEDOLIZUMAB [Suspect]
     Active Substance: VEDOLIZUMAB
  4. VEDOLIZUMAB [Suspect]
     Active Substance: VEDOLIZUMAB
  5. VEDOLIZUMAB [Suspect]
     Active Substance: VEDOLIZUMAB
     Indication: Crohn^s disease
     Dosage: 108 MILLIGRAM, Q2WEEKS
     Dates: start: 20230608
  6. VEDOLIZUMAB [Suspect]
     Active Substance: VEDOLIZUMAB
     Dosage: 108 MILLIGRAM, 1/WEEK
     Dates: start: 202310

REACTIONS (22)
  - Haematochezia [Not Recovered/Not Resolved]
  - Frequent bowel movements [Not Recovered/Not Resolved]
  - Impaired work ability [Unknown]
  - Social problem [Unknown]
  - Poor venous access [Recovering/Resolving]
  - Anxiety [Recovering/Resolving]
  - Migraine [Recovering/Resolving]
  - Stress [Unknown]
  - Hypophagia [Unknown]
  - Fear of injection [Unknown]
  - Off label use [Unknown]
  - Weight increased [Unknown]
  - Injection site erythema [Unknown]
  - Heavy menstrual bleeding [Unknown]
  - Haemoglobin decreased [Unknown]
  - Defaecation urgency [Unknown]
  - Faeces discoloured [Unknown]
  - Joint swelling [Unknown]
  - Drug ineffective [Not Recovered/Not Resolved]
  - Abdominal pain [Unknown]
  - Abdominal distension [Unknown]
  - Back pain [Unknown]

NARRATIVE: CASE EVENT DATE: 20221221
